FAERS Safety Report 4504991-X (Version None)
Quarter: 2004Q4

REPORT INFORMATION
  Report Type: 
  Country: None (occurrence: None)
  Receive Date: 20041015
  Receipt Date: 20040202
  Transmission Date: 20050328
  Serious: Yes (Hospitalization, Other)
  Sender: FDA-Public Use
  Company Number: 2003124522

PATIENT
  Sex: Female
  Weight: 83.4619 kg

DRUGS (3)
  1. NEURONTIN [Suspect]
     Indication: BIPOLAR DISORDER
     Dosage: 2400 MG TID ORAL
     Route: 048
     Dates: start: 20021101
  2. PAROXETINE HYDROCHLORIDE [Concomitant]
  3. VENLAFAXINE HYDROCHLORIDE [Concomitant]

REACTIONS (7)
  - AGGRESSION [None]
  - AGITATION [None]
  - AMNESIA [None]
  - DEPRESSION [None]
  - INSOMNIA [None]
  - INTENTIONAL OVERDOSE [None]
  - SUICIDE ATTEMPT [None]
